FAERS Safety Report 17989100 (Version 2)
Quarter: 2020Q3

REPORT INFORMATION
  Report Type: Spontaneous
  Country: KR (occurrence: KR)
  Receive Date: 20200707
  Receipt Date: 20200828
  Transmission Date: 20201103
  Serious: No
  Sender: FDA-Public Use
  Company Number: KR-ELI_LILLY_AND_COMPANY-KR202007000236

PATIENT
  Age: 43 Year
  Sex: Female
  Weight: 49 kg

DRUGS (8)
  1. BOTOX [Concomitant]
     Active Substance: ONABOTULINUMTOXINA
     Indication: PRODUCT USED FOR UNKNOWN INDICATION
     Dosage: UNK, UNKNOWN
  2. SIBELIUM [FLUNARIZINE DIHYDROCHLORIDE] [Concomitant]
     Active Substance: FLUNARIZINE HYDROCHLORIDE
     Indication: PRODUCT USED FOR UNKNOWN INDICATION
     Dosage: 5 MG, UNKNOWN
  3. IMIGRAN [SUMATRIPTAN] [Concomitant]
     Active Substance: SUMATRIPTAN
     Indication: PRODUCT USED FOR UNKNOWN INDICATION
     Dosage: UNK, UNKNOWN
  4. NARAMIG [Concomitant]
     Active Substance: NARATRIPTAN HYDROCHLORIDE
     Indication: PRODUCT USED FOR UNKNOWN INDICATION
     Dosage: UNK, UNKNOWN
  5. EMGALITY [Suspect]
     Active Substance: GALCANEZUMAB-GNLM
     Indication: PRODUCT USED FOR UNKNOWN INDICATION
     Dosage: 120 MG, MONTHLY (1/M)
     Route: 065
  6. TOPAMAX [Concomitant]
     Active Substance: TOPIRAMATE
     Indication: PRODUCT USED FOR UNKNOWN INDICATION
     Dosage: 150 MG, UNKNOWN
  7. BRINTELLIX [Suspect]
     Active Substance: VORTIOXETINE HYDROBROMIDE
     Indication: PRODUCT USED FOR UNKNOWN INDICATION
     Dosage: 5 MG, UNKNOWN
     Route: 065
  8. TOPAMAX [Concomitant]
     Active Substance: TOPIRAMATE
     Dosage: 100 MG, UNKNOWN

REACTIONS (4)
  - Asthenia [Unknown]
  - Product dose omission issue [Unknown]
  - Migraine [Unknown]
  - Rhinitis [Unknown]

NARRATIVE: CASE EVENT DATE: 20200309
